FAERS Safety Report 15632888 (Version 2)
Quarter: 2018Q4

REPORT INFORMATION
  Report Type: Spontaneous
  Country: IT (occurrence: IT)
  Receive Date: 20181119
  Receipt Date: 20181120
  Transmission Date: 20190205
  Serious: Yes (Other)
  Sender: FDA-Public Use
  Company Number: IT-JNJFOC-20181115228

PATIENT
  Age: 77 Year
  Sex: Female
  Weight: 70 kg

DRUGS (1)
  1. STELARA [Suspect]
     Active Substance: USTEKINUMAB
     Indication: PSORIATIC ARTHROPATHY
     Route: 058
     Dates: start: 20180308, end: 20180608

REACTIONS (1)
  - Gastrointestinal neoplasm [Unknown]

NARRATIVE: CASE EVENT DATE: 20181102
